FAERS Safety Report 7348740-9 (Version None)
Quarter: 2011Q1

REPORT INFORMATION
  Report Type: 
  Country: None (occurrence: None)
  Receive Date: 20110314
  Receipt Date: 20110302
  Transmission Date: 20110831
  Serious: No
  Sender: FDA-Public Use
  Company Number: US-BIOGENIDEC-2011BI008327

PATIENT
  Age: 49 Year
  Sex: Female

DRUGS (2)
  1. AVONEX [Suspect]
     Indication: MULTIPLE SCLEROSIS
     Route: 030
     Dates: start: 20101019, end: 20101202
  2. PRILOSEC [Concomitant]
     Indication: GASTRIC DISORDER
     Dates: start: 20110101

REACTIONS (6)
  - WHEEZING [None]
  - GASTRIC DISORDER [None]
  - DEPRESSION [None]
  - COUGH [None]
  - INFLUENZA LIKE ILLNESS [None]
  - FEELING ABNORMAL [None]
